FAERS Safety Report 6686911-5 (Version None)
Quarter: 2010Q2

REPORT INFORMATION
  Report Type: 
  Country: None (occurrence: None)
  Receive Date: 20100414
  Receipt Date: 20100407
  Transmission Date: 20101027
  Serious: Yes (Hospitalization)
  Sender: FDA-Public Use
  Company Number: 556336

PATIENT
  Age: 64 Year
  Sex: Male

DRUGS (6)
  1. OXALIPLATIN [Suspect]
     Indication: PANCREATIC CARCINOMA
     Dosage: 130 MG, INTRAVENOUS
     Route: 042
     Dates: start: 20100223, end: 20100223
  2. RALTITREXED DISODIUM [Suspect]
     Indication: PANCREATIC CARCINOMA
     Dosage: 6 MG, INTRAVENOUS
     Route: 042
     Dates: start: 20100223, end: 20100223
  3. MAGNESIUM SULFATE [Suspect]
     Dosage: 1 G
     Dates: start: 20100223, end: 20100223
  4. CALCIUM GLUCONATE [Suspect]
     Dosage: 1 G INTRAVENOUS
     Route: 042
     Dates: start: 20100223, end: 20100223
  5. ZOPHREN /00955302/ [Suspect]
     Indication: PREMEDICATION
     Dosage: 8 MG MILLIGRAM (S), INTRAVENOUS
     Route: 042
     Dates: start: 20100223, end: 20100223
  6. SOLU-MEDROL [Suspect]
     Indication: PREMEDICATION
     Dosage: 80 MG MILLIGRAM(S), INTRAVENOUS
     Route: 042
     Dates: start: 20100223, end: 20100223

REACTIONS (9)
  - ABDOMINAL PAIN [None]
  - HEPATIC ENZYME INCREASED [None]
  - HOT FLUSH [None]
  - HYPERSENSITIVITY [None]
  - INFLAMMATION [None]
  - MALAISE [None]
  - PALLOR [None]
  - PYREXIA [None]
  - RENAL IMPAIRMENT [None]
